FAERS Safety Report 4971904-6 (Version None)
Quarter: 2006Q2

REPORT INFORMATION
  Report Type: 
  Country: None (occurrence: None)
  Receive Date: 20060412
  Receipt Date: 20060412
  Transmission Date: 20061013
  Serious: Yes (Hospitalization)
  Sender: FDA-Public Use
  Company Number: None

PATIENT
  Sex: Male
  Weight: 91.6 kg

DRUGS (13)
  1. VELCADE [Suspect]
     Indication: MULTIPLE MYELOMA
     Dosage: 1.3 MG/M2  DAY 1 AND 4 IV
     Route: 042
     Dates: start: 20060310, end: 20060313
  2. DOXORUBICIN HCL [Suspect]
     Dosage: 15MG/M2   DAYS 1 IV
     Route: 042
     Dates: start: 20060310
  3. PERCOCET [Concomitant]
  4. METHADONE [Concomitant]
  5. CALCIUM GLUCONATE [Concomitant]
  6. RANITIDINE [Concomitant]
  7. WARFARIN SODIUM [Concomitant]
  8. TERAZOSIN HCL [Concomitant]
  9. DOCUSATE [Concomitant]
  10. POTASSIUM CHLORIDE [Concomitant]
  11. NEURONTIN [Concomitant]
  12. VANCOMYCIN [Concomitant]
  13. LEVAQUIN [Concomitant]

REACTIONS (5)
  - CLOSTRIDIUM COLITIS [None]
  - CONFUSIONAL STATE [None]
  - DISEASE RECURRENCE [None]
  - LOBAR PNEUMONIA [None]
  - STAPHYLOCOCCAL INFECTION [None]
